FAERS Safety Report 18480430 (Version 1)
Quarter: 2020Q4

REPORT INFORMATION
  Report Type: Spontaneous
  Country: ES (occurrence: ES)
  Receive Date: 20201109
  Receipt Date: 20201109
  Transmission Date: 20210114
  Serious: Yes (Disabling)
  Sender: FDA-Public Use
  Company Number: ES-MYLANLABS-2020M1092354

PATIENT
  Age: 55 Year
  Sex: Male

DRUGS (2)
  1. ATORVASTATIN [Suspect]
     Active Substance: ATORVASTATIN
     Indication: VASCULAR DEVICE USER
     Dosage: UNK
     Route: 065
     Dates: start: 2012, end: 2012
  2. ADIRO [Concomitant]
     Active Substance: ASPIRIN
     Indication: VASCULAR DEVICE USER
     Dosage: UNK
     Route: 065
     Dates: start: 2012

REACTIONS (3)
  - Myalgia [Not Recovered/Not Resolved]
  - Asthenia [Not Recovered/Not Resolved]
  - Blood creatine phosphokinase increased [Recovered/Resolved]

NARRATIVE: CASE EVENT DATE: 2012
